FAERS Safety Report 21099451 (Version 2)
Quarter: 2022Q3

REPORT INFORMATION
  Report Type: Spontaneous
  Country: US (occurrence: US)
  Receive Date: 20220719
  Receipt Date: 20220721
  Transmission Date: 20221026
  Serious: Yes (Other)
  Sender: FDA-Public Use
  Company Number: US-PFIZER INC-PV202200008036

PATIENT
  Age: 71 Year
  Sex: Female

DRUGS (1)
  1. CAMPTOSAR [Suspect]
     Active Substance: IRINOTECAN HYDROCHLORIDE
     Dosage: 100 MG (12 CYCLES EVERY 14 DAYS)

REACTIONS (2)
  - Neoplasm progression [Unknown]
  - Loss of personal independence in daily activities [Unknown]
